FAERS Safety Report 15643274 (Version 1)
Quarter: 2018Q4

REPORT INFORMATION
  Report Type: Report from Study
  Country: JP (occurrence: JP)
  Receive Date: 20181121
  Receipt Date: 20181121
  Transmission Date: 20190205
  Serious: Yes (Hospitalization, Other)
  Sender: FDA-Public Use
  Company Number: PHJP2018JP015433

PATIENT
  Age: 83 Year
  Sex: Female

DRUGS (2)
  1. ZYKADIA [Suspect]
     Active Substance: CERITINIB
     Indication: NON-SMALL CELL LUNG CANCER STAGE IIIB
     Dosage: 750 MG, QD
     Route: 048
     Dates: start: 20171012, end: 20171118
  2. ZYKADIA [Suspect]
     Active Substance: CERITINIB
     Dosage: 600 MG, QD
     Route: 048
     Dates: start: 20180420, end: 20180508

REACTIONS (5)
  - Malaise [Unknown]
  - Pneumonia bacterial [Recovered/Resolved]
  - Hyperglycaemia [Recovered/Resolved]
  - Vomiting [Unknown]
  - Decreased appetite [Recovering/Resolving]

NARRATIVE: CASE EVENT DATE: 201711
